FAERS Safety Report 18523989 (Version 2)
Quarter: 2020Q4

REPORT INFORMATION
  Report Type: Spontaneous
  Country: PT (occurrence: PT)
  Receive Date: 20201119
  Receipt Date: 20201204
  Transmission Date: 20210114
  Serious: Yes (Other)
  Sender: FDA-Public Use
  Company Number: PT-ALLERGAN-2044660US

PATIENT
  Sex: Female

DRUGS (10)
  1. LISINOPRIL + HIDROCLOROTIAZIDA [Concomitant]
     Active Substance: HYDROCHLOROTHIAZIDE\LISINOPRIL
  2. MAGNESIUM PIDOLATE [Concomitant]
     Active Substance: MAGNESIUM PIDOLATE
  3. BILASTINE [Concomitant]
     Active Substance: BILASTINE
  4. METFORMIN [Concomitant]
     Active Substance: METFORMIN HYDROCHLORIDE
  5. BROTIZOLAM [Concomitant]
     Active Substance: BROTIZOLAM
     Dosage: UNK, PRN
  6. VENLAFAXINE [Concomitant]
     Active Substance: VENLAFAXINE HYDROCHLORIDE
  7. PARACETAMOL [Concomitant]
     Active Substance: ACETAMINOPHEN
     Dosage: UNK, PRN
  8. PYLERA [Suspect]
     Active Substance: BISMUTH SUBCITRATE POTASSIUM\METRONIDAZOLE\TETRACYCLINE HYDROCHLORIDE
     Indication: HELICOBACTER INFECTION
     Dosage: UNK
     Route: 048
     Dates: start: 20201021, end: 20201027
  9. PANTOPRAZOLE [Concomitant]
     Active Substance: PANTOPRAZOLE
  10. SINVASTATINA + EZETIMIBA [Concomitant]

REACTIONS (5)
  - Melaena [Recovered/Resolved]
  - Vulvovaginal candidiasis [Recovered/Resolved]
  - Erythema [Recovered/Resolved]
  - Mouth ulceration [Recovered/Resolved]
  - Taste disorder [Recovered/Resolved]

NARRATIVE: CASE EVENT DATE: 20201021
